FAERS Safety Report 5139567-7 (Version None)
Quarter: 2006Q4

REPORT INFORMATION
  Report Type: 
  Country: None (occurrence: None)
  Receive Date: 20061024
  Receipt Date: 20061011
  Transmission Date: 20070319
  Serious: Yes (Hospitalization)
  Sender: FDA-Public Use
  Company Number: 2006125806

PATIENT
  Sex: Male

DRUGS (3)
  1. AZULFIDINE [Suspect]
     Indication: RHEUMATOID ARTHRITIS
     Dosage: 4 GRAM (2 GRAM, 2 IN 1 D)
  2. METHOTREXATE [Suspect]
     Indication: RHEUMATOID ARTHRITIS
  3. PREDNISOLONE [Suspect]
     Indication: RHEUMATOID ARTHRITIS

REACTIONS (6)
  - COUGH [None]
  - DYSPNOEA [None]
  - GLOMERULONEPHRITIS PROLIFERATIVE [None]
  - HAPTOGLOBIN INCREASED [None]
  - INFLAMMATION [None]
  - LUNG DISORDER [None]
